FAERS Safety Report 21915018 (Version 1)
Quarter: 2023Q1

REPORT INFORMATION
  Report Type: Spontaneous
  Country: US (occurrence: US)
  Receive Date: 20230126
  Receipt Date: 20230126
  Transmission Date: 20230417
  Serious: No
  Sender: FDA-Public Use
  Company Number: US-CATALYST PHARMACEUTICALS, INC-2022CAT00628

PATIENT
  Sex: Female
  Weight: 72.109 kg

DRUGS (9)
  1. FIRDAPSE [Suspect]
     Active Substance: AMIFAMPRIDINE PHOSPHATE
     Indication: Myasthenic syndrome
     Dosage: 8 TABLETS DAILY IN DIVIDED DOSES
     Route: 048
     Dates: start: 20190214
  2. AMANTADINE [Concomitant]
     Active Substance: AMANTADINE
     Dosage: 100 MG, 2X/DAY
  3. BACLOFEN [Concomitant]
     Active Substance: BACLOFEN
     Dosage: 10 MG, 3X/DAY
  4. CARVEDILOL [Concomitant]
     Active Substance: CARVEDILOL
     Dosage: 3.125 MG, 2X/DAY
  5. MINERALS\VITAMINS [Concomitant]
     Active Substance: MINERALS\VITAMINS
     Dosage: 1 TABLET, 1X/DAY
  6. CLONAZEPAM [Concomitant]
     Active Substance: CLONAZEPAM
     Dosage: 1 MG, 2X/DAY
  7. CRANBERRY [Concomitant]
     Active Substance: CRANBERRY
     Dosage: 200 MG, AS NEEDED
  8. ENTRESTO [Concomitant]
     Active Substance: SACUBITRIL\VALSARTAN
     Dosage: 1 DOSAGE UNITS, 2X/DAY
  9. LISINOPRIL [Concomitant]
     Active Substance: LISINOPRIL
     Dosage: 5 MG, 1X/DAY

REACTIONS (2)
  - COVID-19 [Not Recovered/Not Resolved]
  - Cough [Unknown]

NARRATIVE: CASE EVENT DATE: 20220101
